FAERS Safety Report 14573451 (Version 1)
Quarter: 2018Q1

REPORT INFORMATION
  Report Type: Spontaneous
  Country: US (occurrence: US)
  Receive Date: 20180223
  Receipt Date: 20180223
  Transmission Date: 20180509
  Serious: Yes (Hospitalization, Other)
  Sender: FDA-Public Use
  Company Number: None

PATIENT
  Age: 0 Day
  Sex: Male
  Weight: 2.04 kg

DRUGS (3)
  1. LEXAPRO [Suspect]
     Active Substance: ESCITALOPRAM OXALATE
     Dosage: DATES OF USE - 0-DELIVERY FOR DEPRESSION
  2. ABILIFY [Suspect]
     Active Substance: ARIPIPRAZOLE
     Dosage: DATES OF USE 0-4 WKS
  3. ABILIFY [Suspect]
     Active Substance: ARIPIPRAZOLE
     Dosage: DATES OF USE - 5-DELIVERY FOR DEPRESSION

REACTIONS (2)
  - Continuous positive airway pressure [None]
  - Respiratory distress [None]

NARRATIVE: CASE EVENT DATE: 20161122
